FAERS Safety Report 5876203-6 (Version None)
Quarter: 2008Q3

REPORT INFORMATION
  Report Type: 
  Country: None (occurrence: None)
  Receive Date: 20080908
  Receipt Date: 20080619
  Transmission Date: 20090109
  Serious: Yes (Life-Threatening, Hospitalization, Other)
  Sender: FDA-Public Use
  Company Number: CLOF-10787

PATIENT
  Age: 68 Year
  Sex: Female
  Weight: 86.3 kg

DRUGS (1)
  1. CLOFARABINE (CLOFARABINE) 30MG/M2 [Suspect]
     Indication: ACUTE MYELOID LEUKAEMIA
     Dosage: 57.6MG, QD, INTRAVENOUS
     Route: 042
     Dates: start: 20071115, end: 20071119

REACTIONS (7)
  - ABDOMINAL DISTENSION [None]
  - ACUTE MYELOID LEUKAEMIA [None]
  - ANAEMIA [None]
  - DISEASE RECURRENCE [None]
  - GASTROINTESTINAL HAEMORRHAGE [None]
  - HAEMOPTYSIS [None]
  - MELAENA [None]
